FAERS Safety Report 12275757 (Version 3)
Quarter: 2016Q2

REPORT INFORMATION
  Report Type: Report from Study
  Country: BR (occurrence: BR)
  Receive Date: 20160418
  Receipt Date: 20160627
  Transmission Date: 20160815
  Serious: Yes (Other)
  Sender: FDA-Public Use
  Company Number: BR-ROCHE-793670

PATIENT
  Age: 51 Year
  Sex: Female
  Weight: 52 kg

DRUGS (13)
  1. MABTHERA [Suspect]
     Active Substance: RITUXIMAB
     Route: 042
  2. AMYTRIL [Concomitant]
     Active Substance: AMITRIPTYLINE HYDROCHLORIDE
     Indication: NERVOUSNESS
     Dosage: 1 TABLET AT NIGHT
     Route: 065
  3. MABTHERA [Suspect]
     Active Substance: RITUXIMAB
     Route: 042
  4. RIVOTRIL [Concomitant]
     Active Substance: CLONAZEPAM
     Indication: NERVOUSNESS
  5. AZITHROMYCIN ANHYDROUS. [Suspect]
     Active Substance: AZITHROMYCIN ANHYDROUS
     Indication: PNEUMONIA
     Route: 065
  6. BEROTEC [Suspect]
     Active Substance: FENOTEROL HYDROBROMIDE
     Indication: INFLUENZA
     Dosage: DURING SEVEN DAYS
     Route: 065
  7. ATROVENT [Suspect]
     Active Substance: IPRATROPIUM BROMIDE
     Indication: INFLUENZA
     Dosage: DURING SEVEN DAYS
     Route: 065
  8. TYLENOL [Concomitant]
     Active Substance: ACETAMINOPHEN
     Indication: PREMEDICATION
     Route: 048
  9. AMYTRIL [Concomitant]
     Active Substance: AMITRIPTYLINE HYDROCHLORIDE
     Indication: INSOMNIA
  10. RIVOTRIL [Concomitant]
     Active Substance: CLONAZEPAM
     Indication: DEPRESSION
     Route: 065
  11. MABTHERA [Suspect]
     Active Substance: RITUXIMAB
     Indication: RHEUMATOID ARTHRITIS
     Dosage: 9 MABTHERA INFUSIONS CYCLES IN FEB-2009, OCT-2009, MAY-2010, NOV-2010, JUL-2011, APR-2012, NOV-2012
     Route: 042
     Dates: start: 20090201, end: 2013
  12. CITALOPRAM [Concomitant]
     Active Substance: CITALOPRAM HYDROBROMIDE
     Route: 065
  13. RIVOTRIL [Concomitant]
     Active Substance: CLONAZEPAM
     Indication: INSOMNIA

REACTIONS (25)
  - Immunodeficiency [Unknown]
  - Fear [Not Recovered/Not Resolved]
  - Pneumonia [Unknown]
  - Somnolence [Recovered/Resolved]
  - Blood pressure decreased [Recovered/Resolved]
  - Drug hypersensitivity [Unknown]
  - Pain [Unknown]
  - Limb discomfort [Recovered/Resolved]
  - Immunodeficiency [Recovering/Resolving]
  - Arthralgia [Recovered/Resolved]
  - Tremor [Unknown]
  - Blood urine present [Unknown]
  - Infusion related reaction [Recovered/Resolved]
  - Weight increased [Not Recovered/Not Resolved]
  - Influenza [Not Recovered/Not Resolved]
  - Arthralgia [Not Recovered/Not Resolved]
  - Anxiety [Not Recovered/Not Resolved]
  - Influenza [Unknown]
  - Hypotension [Recovering/Resolving]
  - Weight increased [Unknown]
  - Urinary tract infection [Recovering/Resolving]
  - Tooth infection [Recovered/Resolved]
  - Abdominal distension [Recovered/Resolved]
  - Pain [Not Recovered/Not Resolved]
  - Drug dose omission [Unknown]

NARRATIVE: CASE EVENT DATE: 20101117
